FAERS Safety Report 5147933-9 (Version None)
Quarter: 2006Q4

REPORT INFORMATION
  Report Type: 
  Country: None (occurrence: None)
  Receive Date: 20061110
  Receipt Date: 20061103
  Transmission Date: 20070319
  Serious: Yes (Hospitalization)
  Sender: FDA-Public Use
  Company Number: US-BRISTOL-MYERS SQUIBB COMPANY-13566112

PATIENT
  Age: 47 Year
  Sex: Male
  Weight: 60 kg

DRUGS (3)
  1. CETUXIMAB [Suspect]
     Indication: LARYNGEAL CANCER
     Route: 042
     Dates: start: 20061024, end: 20061024
  2. CISPLATIN [Suspect]
     Indication: LARYNGEAL CANCER
     Route: 042
     Dates: start: 20061016, end: 20061016
  3. RADIATION THERAPY [Suspect]
     Indication: LARYNGEAL CANCER
     Dates: start: 20061027, end: 20061027

REACTIONS (23)
  - ANOREXIA [None]
  - BLOOD CALCIUM DECREASED [None]
  - BLOOD SODIUM DECREASED [None]
  - CHILLS [None]
  - DEHYDRATION [None]
  - ERYTHEMA [None]
  - HAEMOGLOBIN [None]
  - HAEMOGLOBIN DECREASED [None]
  - HYPOCALCAEMIA [None]
  - HYPONATRAEMIA [None]
  - INFECTION [None]
  - NAUSEA [None]
  - NEUTROPHIL COUNT [None]
  - OESOPHAGITIS [None]
  - PAIN OF SKIN [None]
  - PYREXIA [None]
  - RASH [None]
  - SKIN DISORDER [None]
  - SKIN EXFOLIATION [None]
  - SKIN HAEMORRHAGE [None]
  - STAPHYLOCOCCAL INFECTION [None]
  - VOMITING [None]
  - WHITE BLOOD CELL COUNT DECREASED [None]
